APPROVED DRUG PRODUCT: FELODIPINE
Active Ingredient: FELODIPINE
Strength: 5MG
Dosage Form/Route: TABLET, EXTENDED RELEASE;ORAL
Application: A078855 | Product #002
Applicant: MYLAN PHARMACEUTICALS INC
Approved: Apr 17, 2008 | RLD: No | RS: No | Type: DISCN